FAERS Safety Report 9170963 (Version 2)
Quarter: 2013Q2

REPORT INFORMATION
  Report Type: Report from Study
  Country: US (occurrence: US)
  Receive Date: 20130319
  Receipt Date: 20130425
  Transmission Date: 20140414
  Serious: No
  Sender: FDA-Public Use
  Company Number: US-VERTEX PHARMACEUTICALS INC.-2013-003705

PATIENT
  Age: 58 Year
  Sex: Male
  Weight: 89 kg

DRUGS (6)
  1. VX-950 (TELAPREVIR) [Suspect]
     Indication: HEPATITIS C
     Dosage: 750 MG, TID
     Route: 048
     Dates: start: 20130210, end: 20130222
  2. PEGINTERFERON ALFA [Suspect]
     Indication: HEPATITIS C
     Dosage: 180 ?G, QW
     Route: 058
     Dates: start: 20130210
  3. RIBAVIRIN [Suspect]
     Indication: HEPATITIS C
     Dosage: 600MG AM, 400MG PM
     Route: 048
     Dates: start: 20130210
  4. REYATAZ [Concomitant]
     Indication: HIV INFECTION
  5. NORVIR [Concomitant]
     Indication: HIV INFECTION
  6. EPZICOM [Concomitant]
     Indication: HIV INFECTION

REACTIONS (5)
  - Chills [Not Recovered/Not Resolved]
  - Injection site rash [Recovered/Resolved]
  - Off label use [Unknown]
  - Nausea [Recovered/Resolved]
  - Vomiting [Recovered/Resolved]
